FAERS Safety Report 21284733 (Version 2)
Quarter: 2022Q4

REPORT INFORMATION
  Report Type: Spontaneous
  Country: IE (occurrence: IE)
  Receive Date: 20220902
  Receipt Date: 20221031
  Transmission Date: 20230112
  Serious: Yes (Other)
  Sender: FDA-Public Use
  Company Number: IE-002147023-NVSC2022IE164297

PATIENT
  Sex: Female
  Weight: 68.4 kg

DRUGS (2)
  1. XOLAIR [Suspect]
     Active Substance: OMALIZUMAB
     Indication: Asthma
     Dosage: 2 DOSAGE FORM, (2 DOSES)
     Route: 065
  2. XOLAIR [Suspect]
     Active Substance: OMALIZUMAB
     Dosage: 150 MG, QMO
     Route: 058
     Dates: start: 20220422, end: 20220701

REACTIONS (2)
  - Urticaria [Unknown]
  - Serum sickness [Unknown]
